FAERS Safety Report 4598794-8 (Version None)
Quarter: 2005Q1

REPORT INFORMATION
  Report Type: 
  Country: None (occurrence: None)
  Receive Date: 20050301
  Receipt Date: 20050301
  Transmission Date: 20050727
  Serious: Yes (Hospitalization)
  Sender: FDA-Public Use
  Company Number: None

PATIENT
  Sex: Male

DRUGS (8)
  1. NPH INSULIN [Suspect]
     Indication: DIABETES MELLITUS
     Dosage: 100 UNITS AM SQ
     Route: 058
  2. DIGOXIN [Concomitant]
  3. FUROSEMIDE [Concomitant]
  4. METOLAZONE [Concomitant]
  5. POTASSIUM CHLORIDE [Concomitant]
  6. SIMVASTATIN [Concomitant]
  7. TERAZOSIN [Concomitant]
  8. WARFARIN [Concomitant]

REACTIONS (1)
  - HYPOGLYCAEMIA [None]
